FAERS Safety Report 5199756-2 (Version None)
Quarter: 2007Q1

REPORT INFORMATION
  Report Type: 
  Country: None (occurrence: None)
  Receive Date: 20070105
  Receipt Date: 20060227
  Transmission Date: 20070707
  Serious: No
  Sender: FDA-Public Use
  Company Number: US-GLAXOSMITHKLINE-A0595315A

PATIENT
  Age: 66 Year
  Sex: Female

DRUGS (3)
  1. CIMETIDINE HCL [Suspect]
     Dosage: 800MG FOUR TIMES PER DAY
     Route: 048
  2. DAYPRO [Concomitant]
  3. ASPIRIN [Concomitant]

REACTIONS (1)
  - DRUG INEFFECTIVE [None]
